FAERS Safety Report 9155553 (Version 1)
Quarter: 2013Q1

REPORT INFORMATION
  Report Type: Spontaneous
  Country: CA (occurrence: CA)
  Receive Date: 20130311
  Receipt Date: 20130311
  Transmission Date: 20140127
  Serious: Yes (Other)
  Sender: FDA-Public Use
  Company Number: CA-GLAXOSMITHKLINE-A1015012A

PATIENT
  Sex: Female

DRUGS (1)
  1. FLOVENT [Suspect]
     Indication: BRONCHITIS
     Route: 055
     Dates: start: 201301

REACTIONS (3)
  - Pneumonia [Unknown]
  - Ageusia [Unknown]
  - Quality of life decreased [Unknown]
